FAERS Safety Report 16116249 (Version 2)
Quarter: 2020Q2

REPORT INFORMATION
  Report Type: Report from Study
  Country: DE (occurrence: DE)
  Receive Date: 20190326
  Receipt Date: 20200608
  Transmission Date: 20200713
  Serious: No
  Sender: FDA-Public Use
  Company Number: DE-ROCHE-2237116

PATIENT
  Sex: Female

DRUGS (6)
  1. OCREVUS [Suspect]
     Active Substance: OCRELIZUMAB
     Route: 042
     Dates: start: 20180903
  2. BACLOFEN. [Concomitant]
     Active Substance: BACLOFEN
     Route: 048
  3. SPASMEX [TROSPIUM CHLORIDE] [Concomitant]
     Active Substance: TROSPIUM CHLORIDE
     Route: 065
  4. OCREVUS [Suspect]
     Active Substance: OCRELIZUMAB
     Indication: RELAPSING-REMITTING MULTIPLE SCLEROSIS
     Route: 042
     Dates: start: 20180820
  5. OCREVUS [Suspect]
     Active Substance: OCRELIZUMAB
     Route: 042
     Dates: start: 20200519
  6. OCREVUS [Suspect]
     Active Substance: OCRELIZUMAB
     Route: 042
     Dates: start: 20190311

REACTIONS (3)
  - Nasopharyngitis [Recovered/Resolved]
  - Fatigue [Recovered/Resolved]
  - Headache [Recovered/Resolved]

NARRATIVE: CASE EVENT DATE: 20180904
